FAERS Safety Report 7928868-2 (Version None)
Quarter: 2011Q4

REPORT INFORMATION
  Report Type: 
  Country: None (occurrence: None)
  Receive Date: 20111118
  Receipt Date: 20111114
  Transmission Date: 20120403
  Serious: Yes (Hospitalization)
  Sender: FDA-Public Use
  Company Number: NL-AMGEN-NLDCT2011040715

PATIENT
  Age: 62 Year
  Sex: Male
  Weight: 98.7 kg

DRUGS (4)
  1. VITAMIN D [Concomitant]
     Indication: PROPHYLAXIS
     Dosage: 800 IU, UNK
     Route: 048
     Dates: start: 20110225
  2. TAMSULOSIN HCL [Concomitant]
     Dosage: 0.4 MG, UNK
     Route: 048
     Dates: start: 20100802
  3. DENOSUMAB [Suspect]
     Indication: PROSTATE CANCER
     Dosage: 1 ML, UNK
     Dates: start: 20100304
  4. CALCIUM [Concomitant]
     Indication: PROPHYLAXIS
     Dosage: 1000 MG, UNK
     Route: 048
     Dates: start: 20100225

REACTIONS (1)
  - PROSTATOMEGALY [None]
